FAERS Safety Report 15627386 (Version 1)
Quarter: 2018Q4

REPORT INFORMATION
  Report Type: Spontaneous
  Country: IN (occurrence: IN)
  Receive Date: 20181116
  Receipt Date: 20181116
  Transmission Date: 20190205
  Serious: Yes (Congenital Anomaly, Other)
  Sender: FDA-Public Use
  Company Number: PHHY2018IN150792

PATIENT
  Sex: Female
  Weight: 1.86 kg

DRUGS (3)
  1. PROPRANOLOL [Suspect]
     Active Substance: PROPRANOLOL HYDROCHLORIDE
     Indication: FOETAL EXPOSURE DURING PREGNANCY
     Dosage: MOTHER DOSE: 20 MG, BID
     Route: 064
  2. OMEPRAZOLE. [Suspect]
     Active Substance: OMEPRAZOLE
     Indication: FOETAL EXPOSURE DURING PREGNANCY
     Dosage: MOTHER DOSE: 20 MG, QD
     Route: 064
  3. ZINC ACETATE [Suspect]
     Active Substance: ZINC ACETATE
     Indication: FOETAL EXPOSURE DURING PREGNANCY
     Dosage: MOTHER DOSE: 50 MG, TID
     Route: 064

REACTIONS (9)
  - Premature baby [Unknown]
  - Respiratory distress [Unknown]
  - Neonatal cholestasis [Recovering/Resolving]
  - Cardiogenic shock [Unknown]
  - Foetal exposure during pregnancy [Unknown]
  - Microcephaly [Unknown]
  - Foetal growth restriction [Unknown]
  - Bone deformity [Unknown]
  - Low birth weight baby [Unknown]
